FAERS Safety Report 21423019 (Version 1)
Quarter: 2022Q4

REPORT INFORMATION
  Report Type: Spontaneous
  Country: KR (occurrence: KR)
  Receive Date: 20221007
  Receipt Date: 20221007
  Transmission Date: 20230113
  Serious: Yes (Other)
  Sender: FDA-Public Use
  Company Number: KR-MYLANLABS-2022M1111155

PATIENT
  Age: 7 Decade
  Sex: Male

DRUGS (1)
  1. LYRICA [Suspect]
     Active Substance: PREGABALIN
     Indication: Restless legs syndrome
     Dosage: 50 MILLIGRAM
     Route: 065

REACTIONS (5)
  - Loss of consciousness [Unknown]
  - Asthenia [Unknown]
  - Somnolence [Unknown]
  - Dreamy state [Unknown]
  - Amnesia [Unknown]
